FAERS Safety Report 5271864-7 (Version None)
Quarter: 2007Q1

REPORT INFORMATION
  Report Type: 
  Country: None (occurrence: None)
  Receive Date: 20070316
  Receipt Date: 20070301
  Transmission Date: 20070707
  Serious: Yes (Other)
  Sender: FDA-Public Use
  Company Number: 2007EN000006

PATIENT
  Age: 5 Month
  Sex: Male
  Weight: 10 kg

DRUGS (2)
  1. ADAGEN [Suspect]
     Indication: COMBINED IMMUNODEFICIENCY
     Dosage: SEE IMAGE
     Route: 030
     Dates: end: 20060901
  2. ADAGEN [Suspect]
     Indication: COMBINED IMMUNODEFICIENCY
     Dosage: SEE IMAGE
     Route: 030
     Dates: start: 20051112

REACTIONS (1)
  - PNEUMOCYSTIS JIROVECI PNEUMONIA [None]
